FAERS Safety Report 6920022-6 (Version None)
Quarter: 2010Q3

REPORT INFORMATION
  Report Type: 
  Country: None (occurrence: None)
  Receive Date: 20100811
  Receipt Date: 20100804
  Transmission Date: 20110219
  Serious: Yes (Other)
  Sender: FDA-Public Use
  Company Number: GB-WYE-G06506110

PATIENT
  Age: 55 Year

DRUGS (2)
  1. RAPAMUNE [Suspect]
     Dates: start: 20100201
  2. RAPAMUNE [Suspect]
     Dates: end: 20100701

REACTIONS (3)
  - CHEST DISCOMFORT [None]
  - DRUG WITHDRAWAL SYNDROME [None]
  - DYSPNOEA [None]
